FAERS Safety Report 18623589 (Version 5)
Quarter: 2021Q2

REPORT INFORMATION
  Report Type: Report from Study
  Country: CN (occurrence: CN)
  Receive Date: 20201216
  Receipt Date: 20210423
  Transmission Date: 20210717
  Serious: Yes (Hospitalization, Other)
  Sender: FDA-Public Use
  Company Number: CN-PFIZER INC-2020469986

PATIENT
  Age: 16 Year
  Sex: Male
  Weight: 59.5 kg

DRUGS (21)
  1. OLOPATADINE. [Concomitant]
     Active Substance: OLOPATADINE
     Dosage: FOR ONE TIME
     Route: 048
     Dates: start: 20200823, end: 20200823
  2. TRIPROLIDINE [Concomitant]
     Active Substance: TRIPROLIDINE
     Indication: DERMATITIS ATOPIC
     Dosage: UNK
     Route: 048
     Dates: start: 202005
  3. ECONAZOLE NITRATE. [Concomitant]
     Active Substance: ECONAZOLE NITRATE
     Indication: DERMATITIS ATOPIC
     Dosage: UNK
     Route: 061
     Dates: start: 202005
  4. DEXAMETHASONE. [Concomitant]
     Active Substance: DEXAMETHASONE
     Dosage: 5 MG, SINGLE, ONE TIME
     Route: 030
     Dates: start: 20200620, end: 20200620
  5. COMPOUND BETAMETHASONE [Concomitant]
     Dosage: FOR ONE TIME
     Route: 030
     Dates: start: 20200813, end: 20200813
  6. EBASTINE [Concomitant]
     Active Substance: EBASTINE
     Dosage: UNK, 1X/DAY
     Dates: start: 20200806, end: 20200813
  7. VITAMIN C [Concomitant]
     Active Substance: ASCORBIC ACID
     Dosage: UNK
  8. EBASTINE [Concomitant]
     Active Substance: EBASTINE
     Indication: ECZEMA
     Dosage: UNK
     Route: 048
     Dates: start: 202002
  9. DEXAMETHASONE. [Concomitant]
     Active Substance: DEXAMETHASONE
     Dosage: 3 MG, SINGLE, FOR ONE TIME
     Dates: start: 20200620, end: 20200620
  10. COMPOUND BETAMETHASONE [Concomitant]
     Dosage: FOR ONE TIME
     Route: 030
     Dates: start: 20200809, end: 20200809
  11. FLUOXETINE [Concomitant]
     Active Substance: FLUOXETINE HYDROCHLORIDE
     Dosage: UNK, 2X/DAY
     Dates: start: 20200723, end: 20200815
  12. CRISABOROLE [Suspect]
     Active Substance: CRISABOROLE
     Indication: DERMATITIS ATOPIC
     Dosage: 2X/DAY FOR 37 D (D1 TO WEEK 4 AT 108MG BID, WEEK 4 TO EOT AT 111MG BID
     Route: 061
     Dates: start: 20201010, end: 20201115
  13. LORATADINE. [Concomitant]
     Active Substance: LORATADINE
     Dosage: UNK
     Route: 048
  14. TACROLIMUS. [Concomitant]
     Active Substance: TACROLIMUS
     Dosage: UNK
     Dates: start: 20200823, end: 20200916
  15. CIPROFLOXACIN. [Concomitant]
     Active Substance: CIPROFLOXACIN
     Indication: DERMATITIS ATOPIC
     Dosage: UNK
     Dates: start: 202005
  16. COMPOUND BETAMETHASONE [Concomitant]
     Dosage: FOR ONE TIME
     Route: 030
     Dates: start: 20200723, end: 20200723
  17. HYDROCORTISONE BUTYRATE. [Concomitant]
     Active Substance: HYDROCORTISONE BUTYRATE
     Indication: ECZEMA
     Dosage: UNK
     Route: 061
     Dates: start: 202002
  18. OLOPATADINE. [Concomitant]
     Active Substance: OLOPATADINE
     Dosage: UNK
  19. OLOPATADINE. [Concomitant]
     Active Substance: OLOPATADINE
     Dosage: FOR ONE TIME
     Route: 048
     Dates: start: 20200417, end: 20200417
  20. COMPOUND GLYCYRRHIZIN [CYSTEINE HYDROCHLORIDE;GLYCINE;GLYCYRRHIZIC ACI [Concomitant]
     Indication: DERMATITIS ATOPIC
     Dosage: 75 MG, 3X/DAY
     Dates: start: 202005, end: 20200911
  21. CEFAXINE [Concomitant]
     Dosage: UNK, 2X/DAY
     Route: 048
     Dates: start: 20200813, end: 20200821

REACTIONS (3)
  - Skin infection [Recovered/Resolved]
  - Dermatitis atopic [Recovered/Resolved]
  - Application site infection [Recovered/Resolved]

NARRATIVE: CASE EVENT DATE: 20201110
